FAERS Safety Report 4661212-5 (Version None)
Quarter: 2005Q2

REPORT INFORMATION
  Report Type: 
  Country: None (occurrence: None)
  Receive Date: 20050422
  Receipt Date: 20040813
  Transmission Date: 20051028
  Serious: Yes (Other)
  Sender: FDA-Public Use
  Company Number: 1781-063-5

PATIENT
  Age: 77 Year
  Sex: Female
  Weight: 73.9363 kg

DRUGS (11)
  1. DEXFERRUM [Suspect]
     Indication: ANAEMIA
     Dosage: 500MG IV FIRST DOSE- ONLY TEST DOSE (25MG) RECEIVED
     Route: 042
     Dates: start: 20040813
  2. WARFARIN [Concomitant]
  3. DIPYRIDAMOLE [Concomitant]
  4. LOTENSIN [Concomitant]
  5. GLYBURIDE [Concomitant]
  6. LANOXIN [Concomitant]
  7. MECLIZINE [Concomitant]
  8. METOPROLOL [Concomitant]
  9. ZOCOR [Concomitant]
  10. GEMFIBROZIL [Concomitant]
  11. POTASSIUM CHLORIDE [Concomitant]

REACTIONS (5)
  - CHEST DISCOMFORT [None]
  - DYSPNOEA [None]
  - HYPOTENSION [None]
  - NAUSEA [None]
  - VOMITING [None]
